FAERS Safety Report 15404298 (Version 3)
Quarter: 2018Q4

REPORT INFORMATION
  Report Type: Spontaneous
  Country: US (occurrence: US)
  Receive Date: 20180919
  Receipt Date: 20181227
  Transmission Date: 20190204
  Serious: Yes (Death, Hospitalization, Other)
  Sender: FDA-Public Use
  Company Number: US-OTSUKA-2018_022746

PATIENT
  Sex: Male

DRUGS (7)
  1. ABILIFY [Suspect]
     Active Substance: ARIPIPRAZOLE
     Indication: BIPOLAR DISORDER
     Dosage: 30 MG, QD
     Route: 065
     Dates: start: 2002, end: 201602
  2. PROPRANOLOL [Suspect]
     Active Substance: PROPRANOLOL HYDROCHLORIDE
     Indication: PRODUCT USED FOR UNKNOWN INDICATION
     Dosage: 20 MG, BID (1 IN MORNING AND 1 IN EVENING)
     Route: 065
  3. ABILIFY [Suspect]
     Active Substance: ARIPIPRAZOLE
     Indication: POST-TRAUMATIC STRESS DISORDER
     Dosage: 15 MG, QD
     Route: 048
  4. ALPRAZOLAM. [Suspect]
     Active Substance: ALPRAZOLAM
     Indication: PRODUCT USED FOR UNKNOWN INDICATION
     Dosage: 0.5 MG, QD (AS NEEDED)
     Route: 065
  5. BUSPIRONE [Concomitant]
     Active Substance: BUSPIRONE HYDROCHLORIDE
     Indication: PRODUCT USED FOR UNKNOWN INDICATION
     Dosage: 15 MG, BID (1 1/2 TABLET)
     Route: 065
  6. BUSPIRONE [Concomitant]
     Active Substance: BUSPIRONE HYDROCHLORIDE
     Dosage: 200 MG, QD
     Route: 048
  7. REXULTI [Suspect]
     Active Substance: BREXPIPRAZOLE
     Indication: PRODUCT USED FOR UNKNOWN INDICATION
     Dosage: 3 MG, QD
     Route: 065

REACTIONS (31)
  - Deep vein thrombosis [Recovering/Resolving]
  - Emotional disorder [Unknown]
  - Incorrect dose administered [Unknown]
  - Completed suicide [Fatal]
  - Feeling guilty [Unknown]
  - Hypervigilance [Unknown]
  - Insomnia [Unknown]
  - Psychiatric symptom [Unknown]
  - Drug ineffective [Unknown]
  - Tachyphrenia [Unknown]
  - Therapeutic response unexpected [Unknown]
  - Self-injurious ideation [Unknown]
  - Nightmare [Unknown]
  - Disturbance in attention [Unknown]
  - Tachycardia [Unknown]
  - Suicidal ideation [Unknown]
  - Stress at work [Unknown]
  - Depressed mood [Unknown]
  - Anxiety [Unknown]
  - Product use in unapproved indication [Unknown]
  - Economic problem [Unknown]
  - Overdose [Unknown]
  - Decreased interest [Unknown]
  - Feeling abnormal [Unknown]
  - Asthenia [Unknown]
  - Obsessive-compulsive disorder [Unknown]
  - Cellulitis [Recovering/Resolving]
  - Suicide attempt [Unknown]
  - Irritability [Unknown]
  - Hyperhidrosis [Unknown]
  - Gambling disorder [Not Recovered/Not Resolved]

NARRATIVE: CASE EVENT DATE: 2012
